FAERS Safety Report 6676201-9 (Version None)
Quarter: 2010Q2

REPORT INFORMATION
  Report Type: 
  Country: None (occurrence: None)
  Receive Date: 20100412
  Receipt Date: 20100406
  Transmission Date: 20101027
  Serious: Yes (Hospitalization)
  Sender: FDA-Public Use
  Company Number: US-SP-2010-02033

PATIENT
  Sex: Male

DRUGS (2)
  1. THERACYS [Suspect]
     Indication: BLADDER CANCER
     Route: 043
     Dates: start: 20100318, end: 20100318
  2. THERACYS [Suspect]
     Route: 043
     Dates: start: 20090101, end: 20090101

REACTIONS (2)
  - CHILLS [None]
  - PYREXIA [None]
